FAERS Safety Report 5385442-2 (Version None)
Quarter: 2007Q3

REPORT INFORMATION
  Report Type: 
  Country: None (occurrence: None)
  Receive Date: 20070706
  Receipt Date: 20070706
  Transmission Date: 20080115
  Serious: Yes (Life-Threatening)
  Sender: FDA-Public Use
  Company Number: None

PATIENT
  Age: 50 Year
  Sex: Male
  Weight: 85.2762 kg

DRUGS (1)
  1. TAXOL [Suspect]
     Indication: LUNG NEOPLASM MALIGNANT
     Dosage: 400MG ONCE EVERY 3 WKS IV
     Route: 042
     Dates: start: 20070625

REACTIONS (4)
  - BACK PAIN [None]
  - DYSPNOEA [None]
  - FLUSHING [None]
  - WHEEZING [None]
